FAERS Safety Report 9342436 (Version 1)
Quarter: 2013Q2

REPORT INFORMATION
  Report Type: Spontaneous
  Country: PT (occurrence: PT)
  Receive Date: 20130611
  Receipt Date: 20130611
  Transmission Date: 20140414
  Serious: Yes (Other)
  Sender: FDA-Public Use
  Company Number: PHHY2013PT057552

PATIENT
  Age: 40 Year
  Sex: Female

DRUGS (2)
  1. TACROLIMUS [Suspect]
  2. MYCOPHENOLATE MOFETIL [Concomitant]

REACTIONS (4)
  - Crohn^s disease [Recovered/Resolved]
  - Inflammation [Recovered/Resolved]
  - Abdominal discomfort [Recovered/Resolved]
  - Diarrhoea [Recovered/Resolved]
